FAERS Safety Report 6855870-4 (Version None)
Quarter: 2010Q2

REPORT INFORMATION
  Report Type: 
  Country: None (occurrence: None)
  Receive Date: 20100629
  Receipt Date: 20100317
  Transmission Date: 20101027
  Serious: No
  Sender: FDA-Public Use
  Company Number: US-WYE-H14236810

PATIENT
  Sex: Female

DRUGS (1)
  1. PRISTIQ [Suspect]
     Dosage: 50 MG 1X PER 1 DAY
     Dates: start: 20100101

REACTIONS (6)
  - CRYING [None]
  - FLUSHING [None]
  - HOT FLUSH [None]
  - INCREASED APPETITE [None]
  - PRURITUS [None]
  - WEIGHT INCREASED [None]
